FAERS Safety Report 13618028 (Version 2)
Quarter: 2017Q2

REPORT INFORMATION
  Report Type: Spontaneous
  Country: RU (occurrence: RU)
  Receive Date: 20170606
  Receipt Date: 20170620
  Transmission Date: 20170830
  Serious: Yes (Other)
  Sender: FDA-Public Use
  Company Number: RU-JNJFOC-20170600585

PATIENT
  Age: 31 Year
  Sex: Male

DRUGS (1)
  1. NIZORAL [Suspect]
     Active Substance: KETOCONAZOLE
     Indication: SEBORRHOEIC DERMATITIS
     Route: 061

REACTIONS (8)
  - Accidental exposure to product [Recovered/Resolved]
  - Corneal disorder [Recovered/Resolved]
  - Off label use [Recovered/Resolved]
  - Eye irritation [Recovered/Resolved]
  - Inappropriate schedule of drug administration [Recovered/Resolved]
  - Vision blurred [Recovered/Resolved]
  - Visual acuity reduced [Recovered/Resolved]
  - Pain [Recovered/Resolved]

NARRATIVE: CASE EVENT DATE: 20170531
